FAERS Safety Report 24136670 (Version 2)
Quarter: 2024Q3

REPORT INFORMATION
  Report Type: Spontaneous
  Country: ES (occurrence: ES)
  Receive Date: 20240725
  Receipt Date: 20240905
  Transmission Date: 20241017
  Serious: Yes (Other)
  Sender: MYLAN
  Company Number: None

PATIENT
  Age: 50 Year
  Sex: Male

DRUGS (9)
  1. FENOFIBRATE [Suspect]
     Active Substance: FENOFIBRATE
     Indication: Hypertriglyceridaemia
     Dosage: 160 MILLIGRAM, QD (30 TABLETS)
     Route: 048
     Dates: start: 20240118, end: 20240516
  2. FLUOXETINE HYDROCHLORIDE [Concomitant]
     Active Substance: FLUOXETINE HYDROCHLORIDE
     Dosage: 20 MILLIGRAM, QD (60 TABLETS)
     Route: 048
     Dates: start: 20231011
  3. RIVOTRIL [Concomitant]
     Active Substance: CLONAZEPAM
     Dosage: 0.5 MILLIGRAM, QD (60 TABLETS)
     Route: 048
     Dates: start: 20120312
  4. LEVOMEPROMAZINE [Concomitant]
     Active Substance: LEVOMEPROMAZINE
     Dosage: UNK, QD (20 DROPS DAILY, 1 BOTTLE OF 30ML)
     Route: 048
     Dates: start: 20230608
  5. LAMOTRIGINA NORMON [Concomitant]
     Dosage: 50 MILLIGRAM, Q8H (56 TABLETS)
     Route: 048
     Dates: start: 20120312
  6. ZOLPIDEM TARTRATE [Concomitant]
     Active Substance: ZOLPIDEM TARTRATE
     Dosage: 20 MILLIGRAM, QD (30 TABLETS)
     Route: 048
     Dates: start: 20220621
  7. VALPROATE SODIUM [Concomitant]
     Active Substance: VALPROATE SODIUM
     Dosage: 500 MILLIGRAM, Q8H (100 TABLETS)
     Route: 048
     Dates: start: 20130205
  8. TOPAMAX [Concomitant]
     Active Substance: TOPIRAMATE
     Dosage: 100 MILLIGRAM, BID (60 TABLETS)
     Route: 048
     Dates: start: 20230925
  9. ENALAPRIL [Concomitant]
     Active Substance: ENALAPRIL
     Dosage: 20 MILLIGRAM, BID (28 TABLETS)
     Route: 048
     Dates: start: 20130606

REACTIONS (2)
  - Nephropathy [Recovered/Resolved]
  - Hypertransaminasaemia [Not Recovered/Not Resolved]

NARRATIVE: CASE EVENT DATE: 20240320
